FAERS Safety Report 13043321 (Version 2)
Quarter: 2017Q1

REPORT INFORMATION
  Report Type: Spontaneous
  Country: US (occurrence: US)
  Receive Date: 20161219
  Receipt Date: 20170112
  Transmission Date: 20170428
  Serious: No
  Sender: FDA-Public Use
  Company Number: US-TAIHO ONCOLOGY INC-EU-2016-03188

PATIENT
  Age: 74 Year
  Sex: Male

DRUGS (10)
  1. BENADRYL [Concomitant]
     Active Substance: DIPHENHYDRAMINE HYDROCHLORIDE
     Dosage: NI
  2. LONSURF [Suspect]
     Active Substance: TIPIRACIL HYDROCHLORIDE\TRIFLURIDINE
     Indication: RECTAL CANCER
     Route: 048
     Dates: start: 20161112
  3. RAMIPRIL. [Concomitant]
     Active Substance: RAMIPRIL
     Dosage: NI
  4. LASIX [Concomitant]
     Active Substance: FUROSEMIDE
     Dosage: NI
  5. FENTANYL. [Concomitant]
     Active Substance: FENTANYL
     Dosage: NI
  6. ZOMETA [Concomitant]
     Active Substance: ZOLEDRONIC ACID
     Dosage: NI
  7. LIPITOR [Concomitant]
     Active Substance: ATORVASTATIN CALCIUM
     Dosage: NI
  8. ACETYLSALICYLIC ACID [Concomitant]
     Active Substance: ASPIRIN
     Dosage: NI
  9. XANAX [Concomitant]
     Active Substance: ALPRAZOLAM
     Dosage: NI
  10. ZOFRAN [Concomitant]
     Active Substance: ONDANSETRON HYDROCHLORIDE
     Dosage: NI

REACTIONS (6)
  - Diarrhoea [Unknown]
  - Alopecia [Unknown]
  - Decreased appetite [Unknown]
  - Fatigue [Unknown]
  - Vomiting [Unknown]
  - Constipation [Unknown]

NARRATIVE: CASE EVENT DATE: 2016
